FAERS Safety Report 5414884-1 (Version None)
Quarter: 2007Q3

REPORT INFORMATION
  Report Type: 
  Country: None (occurrence: None)
  Receive Date: 20070815
  Receipt Date: 20070130
  Transmission Date: 20080115
  Serious: No
  Sender: FDA-Public Use
  Company Number: US-KINGPHARMUSA00001-K200700106

PATIENT

DRUGS (5)
  1. SEPTRA [Suspect]
     Dosage: 1 TABLET, BID
     Route: 048
     Dates: start: 20060801, end: 20060801
  2. LIPITOR [Concomitant]
     Dosage: 40 MG, QD
     Dates: start: 19990101
  3. COZAAR [Concomitant]
     Dosage: 100 MG, QD
     Dates: start: 19990101
  4. ASPIRIN [Concomitant]
     Dosage: 81 MG, QD
     Dates: start: 19990101
  5. ZETIA [Concomitant]
     Dosage: 10 MG, QD
     Dates: start: 19990101

REACTIONS (1)
  - GLOSSODYNIA [None]
